FAERS Safety Report 15239348 (Version 4)
Quarter: 2020Q1

REPORT INFORMATION
  Report Type: Spontaneous
  Country: CN (occurrence: CN)
  Receive Date: 20180803
  Receipt Date: 20200106
  Transmission Date: 20200409
  Serious: Yes (Hospitalization, Other)
  Sender: FDA-Public Use
  Company Number: CN-VIIV HEALTHCARE LIMITED-CN2018GSK137192

PATIENT
  Age: 63 Year
  Sex: Male
  Weight: 75 kg

DRUGS (4)
  1. HEPSERA [Suspect]
     Active Substance: ADEFOVIR DIPIVOXIL
     Indication: HEPATITIS B
     Dosage: 10 MG, QD
     Route: 048
     Dates: start: 2005
  2. HEPTODIN [Suspect]
     Active Substance: LAMIVUDINE
     Indication: HEPATITIS B
     Dosage: 100 MG, QD
     Route: 048
     Dates: start: 2000, end: 200507
  3. DIAZEPAM. [Suspect]
     Active Substance: DIAZEPAM
     Indication: INSOMNIA
     Dosage: 1 DF(TABLET), QD
     Route: 048
  4. NORVASC [Suspect]
     Active Substance: AMLODIPINE BESYLATE
     Indication: HYPERTENSION
     Dosage: 1 DF (TABLET), QD
     Route: 048
     Dates: start: 201610

REACTIONS (18)
  - Eczema [Recovered/Resolved]
  - Osteomalacia [Unknown]
  - Splenomegaly [Recovered/Resolved]
  - Viral load [Unknown]
  - Headache [Unknown]
  - Lacunar infarction [Not Recovered/Not Resolved]
  - Hepatic cirrhosis [Recovering/Resolving]
  - Product dose omission [Unknown]
  - Coccydynia [Unknown]
  - Hypertension [Not Recovered/Not Resolved]
  - Hepatitis E antibody [Recovered/Resolved]
  - Back pain [Unknown]
  - Portal vein dilatation [Recovered/Resolved]
  - Viral mutation identified [Unknown]
  - Hepatitis B surface antigen [Recovered/Resolved]
  - Hepatitis B core antibody [Recovered/Resolved]
  - Neck pain [Recovered/Resolved]
  - Disease recurrence [Unknown]

NARRATIVE: CASE EVENT DATE: 2005
